FAERS Safety Report 7157425-3 (Version None)
Quarter: 2010Q4

REPORT INFORMATION
  Report Type: 
  Country: None (occurrence: None)
  Receive Date: 20101214
  Receipt Date: 20101210
  Transmission Date: 20110411
  Serious: Yes (Hospitalization, Other)
  Sender: FDA-Public Use
  Company Number: A0887456A

PATIENT
  Sex: Female

DRUGS (2)
  1. TYKERB [Suspect]
     Dosage: 1250MG PER DAY
     Route: 048
     Dates: start: 20100422, end: 20101128
  2. XELODA [Concomitant]
     Route: 065

REACTIONS (2)
  - INFECTION [None]
  - MALIGNANT NEOPLASM PROGRESSION [None]
